FAERS Safety Report 4410668-1 (Version None)
Quarter: 2004Q3

REPORT INFORMATION
  Report Type: 
  Country: None (occurrence: None)
  Receive Date: 20040729
  Receipt Date: 20040705
  Transmission Date: 20050211
  Serious: Yes (Other)
  Sender: FDA-Public Use
  Company Number: PHBS2004BR09120

PATIENT
  Age: 46 Year
  Sex: Male
  Weight: 84 kg

DRUGS (3)
  1. DIOVAN [Suspect]
     Indication: HYPERTENSION
     Dosage: 160 MG/DAY
     Route: 048
     Dates: start: 20040501
  2. CLORANA [Concomitant]
     Indication: HYPERTENSION
     Dosage: 1 TABLET/DAY
     Route: 048
     Dates: end: 20040629
  3. ADALAT [Concomitant]
     Indication: HYPERTENSION
     Dosage: 2 TABLET/DAY
     Route: 048
     Dates: end: 20040629

REACTIONS (3)
  - COUGH [None]
  - DRUG INEFFECTIVE [None]
  - INGUINAL HERNIA [None]
